FAERS Safety Report 9541871 (Version 1)
Quarter: 2013Q3

REPORT INFORMATION
  Report Type: Spontaneous
  Country: AU (occurrence: AU)
  Receive Date: 20130923
  Receipt Date: 20130923
  Transmission Date: 20140515
  Serious: Yes (Death, Other)
  Sender: FDA-Public Use
  Company Number: PHHY2013AU104873

PATIENT
  Sex: Female

DRUGS (19)
  1. FAMVIR [Suspect]
     Dosage: UNK UKN, UNK
  2. METOPROLOL [Suspect]
     Dosage: UNK UKN, UNK
  3. FLUCONAZOLE [Suspect]
     Dosage: UNK UKN, UNK
  4. RAMIPRIL [Suspect]
     Dosage: UNK UKN, UNK
  5. VENTOLIN [Suspect]
     Dosage: UNK UKN, UNK
  6. ATROVENT [Suspect]
     Dosage: UNK UKN, UNK
  7. FUNGILIN [Suspect]
     Dosage: UNK UKN, UNK
  8. KENALOG /00806701/ [Suspect]
     Dosage: UNK UKN, UNK
  9. MAXOLON [Suspect]
     Dosage: UNK UKN, UNK
  10. NEXIUM 1-2-3 [Suspect]
     Dosage: UNK UKN, UNK
  11. NIZATIDINE [Suspect]
     Dosage: UNK UKN, UNK
  12. SPIRONOLACTONE [Suspect]
     Dosage: UNK UKN, UNK
  13. TEMAZEPAM [Suspect]
     Dosage: UNK UKN, UNK
  14. PANADEINE FORTE [Suspect]
     Dosage: UNK UKN, UNK
  15. PANAMAX [Suspect]
     Dosage: UNK UKN, UNK
  16. PARIET [Suspect]
     Dosage: UNK UKN, UNK
  17. PRADAXA [Suspect]
     Dosage: UNK UKN, UNK
  18. SERETIDE [Suspect]
     Dosage: UNK UKN, UNK
  19. SPIRIVA [Suspect]
     Dosage: UNK UKN, UNK

REACTIONS (1)
  - Pancreatic carcinoma [Fatal]
